FAERS Safety Report 8386349-9 (Version None)
Quarter: 2012Q2

REPORT INFORMATION
  Report Type: 
  Country: None (occurrence: None)
  Receive Date: 20120523
  Receipt Date: 20120511
  Transmission Date: 20120825
  Serious: Yes (Hospitalization)
  Sender: FDA-Public Use
  Company Number: AUR-APL-2009-00279

PATIENT
  Age: 57 Year
  Sex: Female
  Weight: 89 kg

DRUGS (2)
  1. ISOSORBIDE DNITRATE (ISOSORBIDE DINITRATE) [Concomitant]
  2. METFORMIN HCL [Suspect]
     Indication: TYPE 2 DIABETES MELLITUS
     Dosage: 1700 MG (850 MG,2 IN 1 D)
     Dates: end: 19881107

REACTIONS (6)
  - POLYNEUROPATHY [None]
  - HEPATITIS ACUTE [None]
  - RETINOPATHY HYPERTENSIVE [None]
  - CHOLELITHIASIS [None]
  - HEPATIC STEATOSIS [None]
  - BLOOD PRESSURE SYSTOLIC INCREASED [None]
